FAERS Safety Report 12674979 (Version 3)
Quarter: 2016Q3

REPORT INFORMATION
  Report Type: Report from Study
  Country: JP (occurrence: JP)
  Receive Date: 20160822
  Receipt Date: 20160927
  Transmission Date: 20161109
  Serious: Yes (Death, Hospitalization, Other)
  Sender: FDA-Public Use
  Company Number: JP-BRISTOL-MYERS SQUIBB COMPANY-BMS-2016-049677

PATIENT
  Age: 67 Year
  Sex: Male

DRUGS (6)
  1. NIVOLUMAB [Suspect]
     Active Substance: NIVOLUMAB
     Dosage: 160 UNK, UNK
     Route: 041
     Dates: start: 20160502, end: 20160502
  2. TAGRISSO [Suspect]
     Active Substance: OSIMERTINIB
     Indication: NON-SMALL CELL LUNG CANCER
     Dosage: 80 MG, UNK
     Route: 048
     Dates: start: 20160602, end: 20160610
  3. NIVOLUMAB [Suspect]
     Active Substance: NIVOLUMAB
     Dosage: 160 UNK, UNK
     Route: 041
     Dates: start: 2016, end: 2016
  4. NIVOLUMAB [Suspect]
     Active Substance: NIVOLUMAB
     Indication: NON-SMALL CELL LUNG CANCER
     Dosage: 160 MG, UNK
     Route: 041
     Dates: start: 20160330, end: 20160330
  5. NIVOLUMAB [Suspect]
     Active Substance: NIVOLUMAB
     Dosage: 80 MG, UNK
     Route: 048
     Dates: start: 20160602, end: 20160602
  6. NIVOLUMAB [Suspect]
     Active Substance: NIVOLUMAB
     Dosage: 160 UNK, UNK
     Route: 041
     Dates: start: 20160331, end: 20160331

REACTIONS (2)
  - Malignant neoplasm progression [Fatal]
  - Lung disorder [Fatal]

NARRATIVE: CASE EVENT DATE: 20160502
